FAERS Safety Report 8572056-6 (Version None)
Quarter: 2012Q3

REPORT INFORMATION
  Report Type: 
  Country: None (occurrence: None)
  Receive Date: 20120806
  Receipt Date: 20120729
  Transmission Date: 20120928
  Serious: Yes (Death, Hospitalization, Other)
  Sender: FDA-Public Use
  Company Number: IT-CELGENEUS-083-22393-12062141

PATIENT
  Sex: Male

DRUGS (8)
  1. ISTODAX [Suspect]
     Route: 041
     Dates: start: 20120327
  2. PREDNISONE [Concomitant]
     Dosage: 50 MILLIGRAM
     Route: 065
  3. LEVOTHYROXINE SODIUM [Concomitant]
     Dosage: 50 MICROGRAM
     Route: 065
  4. PREDNISONE TAB [Concomitant]
     Dosage: 25 MILLIGRAM
     Route: 065
  5. ISTODAX [Suspect]
     Route: 041
  6. OMEPRAZOLE [Concomitant]
     Dosage: 20 MILLIGRAM
     Route: 065
  7. ISTODAX [Suspect]
     Route: 041
     Dates: start: 20120530, end: 20120530
  8. KYTRIL [Concomitant]
     Dosage: 2 MILLIGRAM
     Route: 065

REACTIONS (7)
  - ASTHENIA [None]
  - PYREXIA [None]
  - CEREBRAL TOXOPLASMOSIS [None]
  - DECREASED APPETITE [None]
  - THROMBOCYTOPENIA [None]
  - CENTRAL NERVOUS SYSTEM LYMPHOMA [None]
  - DIPLEGIA [None]
